FAERS Safety Report 25943949 (Version 2)
Quarter: 2025Q4

REPORT INFORMATION
  Report Type: Spontaneous
  Country: CA (occurrence: CA)
  Receive Date: 20251021
  Receipt Date: 20251114
  Transmission Date: 20260117
  Serious: Yes (Hospitalization)
  Sender: CSL BEHRING
  Company Number: CA-BEH-2025222201

PATIENT
  Age: 66 Year
  Sex: Male
  Weight: 80 kg

DRUGS (4)
  1. PRIVIGEN [Suspect]
     Active Substance: HUMAN IMMUNOGLOBULIN G
     Indication: Chronic inflammatory demyelinating polyradiculoneuropathy
     Dosage: 50 ML
     Route: 042
     Dates: start: 20250908, end: 20250908
  2. PRIVIGEN [Suspect]
     Active Substance: HUMAN IMMUNOGLOBULIN G
     Dosage: 100 ML
     Route: 042
     Dates: start: 20250908, end: 20250908
  3. GAMMAGARD [Concomitant]
     Active Substance: HUMAN IMMUNOGLOBULIN G
     Dosage: 2G/KG OVER 5 DAYS
     Dates: start: 20250908
  4. SODIUM CHLORIDE [Concomitant]
     Active Substance: SODIUM CHLORIDE
     Dosage: 500 ML

REACTIONS (27)
  - Transfusion-associated dyspnoea [Recovered/Resolved]
  - Pyrexia [Unknown]
  - Chills [Unknown]
  - Dyspnoea [Unknown]
  - Bronchospasm [Unknown]
  - Arteriosclerosis [Unknown]
  - Atelectasis [Unknown]
  - Sinus tachycardia [Unknown]
  - Electrocardiogram abnormal [Unknown]
  - Chills [Recovered/Resolved]
  - Dyspnoea [Recovered/Resolved]
  - Tachycardia [Recovered/Resolved]
  - Wheezing [Recovered/Resolved]
  - Dyspnoea [Recovered/Resolved]
  - Rales [Recovered/Resolved]
  - Anxiety [Recovered/Resolved]
  - Rales [Recovered/Resolved]
  - Hypoaesthesia [Unknown]
  - Wheezing [Unknown]
  - Dyspnoea [Recovered/Resolved]
  - Breath sounds abnormal [Recovered/Resolved]
  - Rales [Recovered/Resolved]
  - Hypoaesthesia [Unknown]
  - Motor dysfunction [Unknown]
  - Headache [Unknown]
  - Respiratory alkalosis [Unknown]
  - Hyperventilation [Unknown]

NARRATIVE: CASE EVENT DATE: 20250901
